FAERS Safety Report 21448893 (Version 1)
Quarter: 2022Q4

REPORT INFORMATION
  Report Type: Report from Study
  Country: IT (occurrence: IT)
  Receive Date: 20221013
  Receipt Date: 20221013
  Transmission Date: 20230113
  Serious: Yes (Death, Other)
  Sender: FDA-Public Use
  Company Number: None

PATIENT
  Age: 20 Year
  Sex: Male
  Weight: 71 kg

DRUGS (4)
  1. DOXORUBICIN [Suspect]
     Active Substance: DOXORUBICIN
     Indication: Product used for unknown indication
     Dosage: 71.6 MG BY INTRAVENOUS INFUSION FOR TWO HOURS ON 09-09-22
     Route: 042
     Dates: start: 20220909, end: 20220909
  2. VINCRISTINE [Suspect]
     Active Substance: VINCRISTINE
     Indication: Hodgkin^s disease
     Dosage: VINCRISTINE 2 MG INTRAVENOUS FIRST DOSE ON 09-09- 22 AND SECOND DOSE ON 16-09-22
     Route: 042
     Dates: start: 20220909, end: 20220916
  3. ETOPOSIDE [Suspect]
     Active Substance: ETOPOSIDE
     Indication: Hodgkin^s disease
     Dosage: ETOPOSIDE 224 MG ONCE A DAY BY INTRAVENOUS INFUSION FOR TWO HOURS ON 9-10-11-12-13/09/22
     Route: 042
     Dates: start: 20220909, end: 20220913
  4. PREDNISONE [Suspect]
     Active Substance: PREDNISONE
     Indication: Product used for unknown indication
     Dosage: DELTACORTENE 60 MG/M2 IN THREE DOSES A DAY ORALLY
     Route: 048
     Dates: start: 20220909, end: 20220922

REACTIONS (4)
  - Pulmonary alveolar haemorrhage [Fatal]
  - Multiple organ dysfunction syndrome [Fatal]
  - Pulmonary embolism [Fatal]
  - Sepsis [Fatal]

NARRATIVE: CASE EVENT DATE: 20220922
